FAERS Safety Report 8775806 (Version 1)
Quarter: 2012Q4

REPORT INFORMATION
  Report Type: 
  Country: GR (occurrence: GR)
  Receive Date: 20120910
  Receipt Date: 20120910
  Transmission Date: 20130627
  Serious: Yes (Hospitalization)
  Sender: FDA-Public Use
  Company Number: GR-ROCHE-1011997

PATIENT
  Sex: Male

DRUGS (2)
  1. ROACTEMRA [Suspect]
     Indication: RHEUMATOID ARTHRITIS
     Route: 042
     Dates: start: 20101112, end: 20110802
  2. ROACTEMRA [Suspect]
     Indication: GOUTY ARTHRITIS

REACTIONS (1)
  - Prostate cancer [Not Recovered/Not Resolved]
